FAERS Safety Report 14008385 (Version 3)
Quarter: 2018Q1

REPORT INFORMATION
  Report Type: Report from Study
  Country: US (occurrence: US)
  Receive Date: 20170925
  Receipt Date: 20180112
  Transmission Date: 20180508
  Serious: Yes (Hospitalization, Other)
  Sender: FDA-Public Use
  Company Number: US-JNJFOC-20170923577

PATIENT
  Age: 84 Year
  Sex: Female

DRUGS (24)
  1. MELATONIN [Concomitant]
     Active Substance: MELATONIN
  2. PYRIDOXINE [Concomitant]
     Active Substance: PYRIDOXINE
  3. VITAMIN D [Concomitant]
     Active Substance: CHOLECALCIFEROL
  4. POTASSIUM [Concomitant]
     Active Substance: POTASSIUM
  5. LYRICA [Concomitant]
     Active Substance: PREGABALIN
  6. CALCIUM CARBONATE. [Concomitant]
     Active Substance: CALCIUM CARBONATE
  7. GABAPENTIN. [Concomitant]
     Active Substance: GABAPENTIN
  8. METOPROLOL. [Concomitant]
     Active Substance: METOPROLOL
  9. VITAMIN B6 [Concomitant]
     Active Substance: PYRIDOXINE HYDROCHLORIDE
  10. ASPIRIN. [Concomitant]
     Active Substance: ASPIRIN
  11. HYDROCHLOROTH [Concomitant]
     Active Substance: HYDROCHLOROTHIAZIDE
  12. LOVENOX [Concomitant]
     Active Substance: ENOXAPARIN SODIUM
  13. CILOSTAZOL. [Concomitant]
     Active Substance: CILOSTAZOL
  14. AMLODIPINE [Concomitant]
     Active Substance: AMLODIPINE BESYLATE
  15. SENNA [Concomitant]
     Active Substance: SENNA LEAF\SENNOSIDES\SENNOSIDES A AND B
  16. ATORVASTATIN CALCIUM. [Concomitant]
     Active Substance: ATORVASTATIN CALCIUM
  17. DIPHENHYDRAMIN [Concomitant]
     Active Substance: DIPHENHYDRAMINE
  18. DOCUSATE SODIUM. [Concomitant]
     Active Substance: DOCUSATE SODIUM
  19. TYLENOL [Concomitant]
     Active Substance: ACETAMINOPHEN
  20. LORATADINE. [Concomitant]
     Active Substance: LORATADINE
  21. VITAMIN B12 [Concomitant]
     Active Substance: CYANOCOBALAMIN
  22. VITAMIN B NOS [Concomitant]
     Active Substance: VITAMIN B
  23. IMBRUVICA [Suspect]
     Active Substance: IBRUTINIB
     Indication: CHRONIC LYMPHOCYTIC LEUKAEMIA
     Route: 048
     Dates: start: 20170324, end: 2017
  24. OMEPRAZOLE. [Concomitant]
     Active Substance: OMEPRAZOLE

REACTIONS (4)
  - White blood cell count decreased [Unknown]
  - Haematotympanum [Not Recovered/Not Resolved]
  - Splenic haematoma [Unknown]
  - Splenomegaly [Unknown]

NARRATIVE: CASE EVENT DATE: 201707
